FAERS Safety Report 25264153 (Version 1)
Quarter: 2025Q2

REPORT INFORMATION
  Report Type: Report from Study
  Country: PK (occurrence: PK)
  Receive Date: 20250502
  Receipt Date: 20250502
  Transmission Date: 20250717
  Serious: Yes (Death, Other)
  Sender: MYLAN
  Company Number: PK-MYLANLABS-2025M1037148

PATIENT
  Age: 52 Year
  Sex: Male

DRUGS (44)
  1. PRETOMANID [Suspect]
     Active Substance: PRETOMANID
     Indication: Product used for unknown indication
     Route: 048
  2. PRETOMANID [Suspect]
     Active Substance: PRETOMANID
  3. PRETOMANID [Suspect]
     Active Substance: PRETOMANID
  4. PRETOMANID [Suspect]
     Active Substance: PRETOMANID
     Route: 048
  5. PRETOMANID [Suspect]
     Active Substance: PRETOMANID
     Route: 065
  6. PRETOMANID [Suspect]
     Active Substance: PRETOMANID
  7. PRETOMANID [Suspect]
     Active Substance: PRETOMANID
  8. PRETOMANID [Suspect]
     Active Substance: PRETOMANID
     Route: 065
  9. LINEZOLID [Suspect]
     Active Substance: LINEZOLID
     Indication: Product used for unknown indication
     Route: 048
  10. LINEZOLID [Suspect]
     Active Substance: LINEZOLID
  11. LINEZOLID [Suspect]
     Active Substance: LINEZOLID
  12. LINEZOLID [Suspect]
     Active Substance: LINEZOLID
     Route: 048
  13. LINEZOLID [Suspect]
     Active Substance: LINEZOLID
     Route: 065
  14. LINEZOLID [Suspect]
     Active Substance: LINEZOLID
  15. LINEZOLID [Suspect]
     Active Substance: LINEZOLID
  16. LINEZOLID [Suspect]
     Active Substance: LINEZOLID
     Route: 065
  17. MOXIFLOXACIN [Suspect]
     Active Substance: MOXIFLOXACIN
     Indication: Product used for unknown indication
     Route: 048
  18. MOXIFLOXACIN [Suspect]
     Active Substance: MOXIFLOXACIN
  19. MOXIFLOXACIN [Suspect]
     Active Substance: MOXIFLOXACIN
  20. MOXIFLOXACIN [Suspect]
     Active Substance: MOXIFLOXACIN
     Route: 048
  21. MOXIFLOXACIN [Suspect]
     Active Substance: MOXIFLOXACIN
     Route: 065
  22. MOXIFLOXACIN [Suspect]
     Active Substance: MOXIFLOXACIN
  23. MOXIFLOXACIN [Suspect]
     Active Substance: MOXIFLOXACIN
  24. MOXIFLOXACIN [Suspect]
     Active Substance: MOXIFLOXACIN
     Route: 065
  25. BEDAQUILINE [Suspect]
     Active Substance: BEDAQUILINE
     Indication: Product used for unknown indication
     Dosage: 400 MILLIGRAM, QD (OD FOR 2 WEEK)
     Route: 048
     Dates: start: 20250329
  26. BEDAQUILINE [Suspect]
     Active Substance: BEDAQUILINE
     Dosage: 400 MILLIGRAM, QD (OD FOR 2 WEEK)
     Dates: start: 20250329
  27. BEDAQUILINE [Suspect]
     Active Substance: BEDAQUILINE
     Dosage: 400 MILLIGRAM, QD (OD FOR 2 WEEK)
     Dates: start: 20250329
  28. BEDAQUILINE [Suspect]
     Active Substance: BEDAQUILINE
     Dosage: 400 MILLIGRAM, QD (OD FOR 2 WEEK)
     Route: 048
     Dates: start: 20250329
  29. BEDAQUILINE [Suspect]
     Active Substance: BEDAQUILINE
     Route: 065
  30. BEDAQUILINE [Suspect]
     Active Substance: BEDAQUILINE
  31. BEDAQUILINE [Suspect]
     Active Substance: BEDAQUILINE
  32. BEDAQUILINE [Suspect]
     Active Substance: BEDAQUILINE
     Route: 065
  33. PYRIDOXINE [Concomitant]
     Active Substance: PYRIDOXINE
     Indication: Neuropathy peripheral
     Dosage: 50 MILLIGRAM, QD (ONCE DAILY)
     Dates: start: 20250329
  34. PYRIDOXINE [Concomitant]
     Active Substance: PYRIDOXINE
     Dosage: 50 MILLIGRAM, QD (ONCE DAILY)
     Route: 065
     Dates: start: 20250329
  35. PYRIDOXINE [Concomitant]
     Active Substance: PYRIDOXINE
     Dosage: 50 MILLIGRAM, QD (ONCE DAILY)
     Route: 065
     Dates: start: 20250329
  36. PYRIDOXINE [Concomitant]
     Active Substance: PYRIDOXINE
     Dosage: 50 MILLIGRAM, QD (ONCE DAILY)
     Dates: start: 20250329
  37. NPH INSULIN [Concomitant]
     Active Substance: INSULIN BEEF
     Indication: Diabetes mellitus
  38. NPH INSULIN [Concomitant]
     Active Substance: INSULIN BEEF
     Route: 065
  39. NPH INSULIN [Concomitant]
     Active Substance: INSULIN BEEF
     Route: 065
  40. NPH INSULIN [Concomitant]
     Active Substance: INSULIN BEEF
  41. INSULIN NOS [Concomitant]
     Active Substance: INSULIN NOS
     Indication: Diabetes mellitus
  42. INSULIN NOS [Concomitant]
     Active Substance: INSULIN NOS
     Route: 065
  43. INSULIN NOS [Concomitant]
     Active Substance: INSULIN NOS
     Route: 065
  44. INSULIN NOS [Concomitant]
     Active Substance: INSULIN NOS

REACTIONS (4)
  - Death [Fatal]
  - Blood bilirubin increased [Recovering/Resolving]
  - White blood cell count increased [Recovering/Resolving]
  - Anaemia [Not Recovered/Not Resolved]

NARRATIVE: CASE EVENT DATE: 20250315
